FAERS Safety Report 19212737 (Version 2)
Quarter: 2021Q2

REPORT INFORMATION
  Report Type: Report from Study
  Country: US (occurrence: US)
  Receive Date: 20210504
  Receipt Date: 20210602
  Transmission Date: 20210717
  Serious: Yes (Death, Hospitalization, Other)
  Sender: FDA-Public Use
  Company Number: US-ASTRAZENECA-2021A381274

PATIENT
  Age: 29076 Day
  Sex: Female
  Weight: 95.3 kg

DRUGS (13)
  1. CHOLECALCIFEROL [Concomitant]
     Active Substance: CHOLECALCIFEROL
     Route: 048
  2. BREO ELLIPTA [Concomitant]
     Active Substance: FLUTICASONE FUROATE\VILANTEROL TRIFENATATE
     Dosage: 200 MCG? 25 MCG
     Route: 065
  3. ROXICODONE [Concomitant]
     Active Substance: OXYCODONE HYDROCHLORIDE
     Indication: PAIN
     Dosage: 1?2 TABLETS EVERY 4 HOURS
     Route: 048
  4. EFFEXOR XR [Concomitant]
     Active Substance: VENLAFAXINE HYDROCHLORIDE
     Route: 048
  5. PROAIR HFA [Concomitant]
     Active Substance: ALBUTEROL SULFATE
     Dosage: 90 MCG 1? 2 PUFFS ? EVERY 4?6 HOURS
     Route: 048
  6. FORFIVO XL [Concomitant]
     Active Substance: BUPROPION HYDROCHLORIDE
     Route: 048
  7. DEPLIN [Concomitant]
     Active Substance: LEVOMEFOLATE CALCIUM
     Route: 048
  8. SINGULAIR [Concomitant]
     Active Substance: MONTELUKAST SODIUM
     Route: 048
  9. ULTRAM [Concomitant]
     Active Substance: TRAMADOL HYDROCHLORIDE
     Indication: PAIN
     Route: 048
  10. PLENDIL [Concomitant]
     Active Substance: FELODIPINE
     Route: 048
  11. NEXIUM [Suspect]
     Active Substance: ESOMEPRAZOLE MAGNESIUM
     Dosage: 40 MG BY MOUTH EVERY MORNING BEFORE BREAKFAST
     Route: 048
  12. COLACE [Concomitant]
     Active Substance: DOCUSATE SODIUM
     Indication: CONSTIPATION
     Route: 048
  13. BENTYL [Concomitant]
     Active Substance: DICYCLOMINE HYDROCHLORIDE
     Indication: GASTROINTESTINAL PAIN
     Route: 048

REACTIONS (18)
  - Hypophagia [Unknown]
  - Depression [Unknown]
  - Anxiety [Unknown]
  - Thrombocytosis [Unknown]
  - Bone pain [Unknown]
  - Spinal compression fracture [Unknown]
  - Hypertension [Unknown]
  - Neoplasm malignant [Fatal]
  - Chronic kidney disease [Unknown]
  - Hyponatraemia [Unknown]
  - Asthenia [Unknown]
  - Arthralgia [Unknown]
  - Dehydration [Unknown]
  - Breast cancer metastatic [Unknown]
  - Fall [Unknown]
  - Inappropriate antidiuretic hormone secretion [Unknown]
  - Metastases to bone [Unknown]
  - Hypercalcaemia [Unknown]

NARRATIVE: CASE EVENT DATE: 20200826
